FAERS Safety Report 7930831-2 (Version None)
Quarter: 2011Q4

REPORT INFORMATION
  Report Type: 
  Country: None (occurrence: None)
  Receive Date: 20111121
  Receipt Date: 20111117
  Transmission Date: 20120403
  Serious: Yes (Other)
  Sender: FDA-Public Use
  Company Number: DK-PFIZER INC-2011098504

PATIENT
  Age: 51 Year
  Sex: Female
  Weight: 64 kg

DRUGS (6)
  1. MIRTAZAPINE [Concomitant]
  2. SIMVASTATIN [Concomitant]
     Dosage: 40 MG, 1X/DAY
     Dates: start: 20110429
  3. VARENICLINE TARTRATE [Suspect]
     Dosage: 1 MG, 2X/DAY
     Dates: start: 20110501
  4. AMLODIPINE [Concomitant]
     Dosage: 5 MG, 1X/DAY
     Dates: start: 20110429
  5. CLOPIDOGREL [Concomitant]
     Indication: ANTICOAGULANT THERAPY
     Dosage: 75 MG, 1X/DAY
     Dates: start: 20110429
  6. VARENICLINE TARTRATE [Suspect]
     Indication: SMOKING CESSATION THERAPY
     Dosage: UNK
     Dates: start: 20110507, end: 20110501

REACTIONS (1)
  - RECTAL HAEMORRHAGE [None]
